FAERS Safety Report 17233223 (Version 2)
Quarter: 2020Q1

REPORT INFORMATION
  Report Type: Spontaneous
  Country: US (occurrence: US)
  Receive Date: 20200104
  Receipt Date: 20200114
  Transmission Date: 20200409
  Serious: No
  Sender: FDA-Public Use
  Company Number: NVSC2019US085206

PATIENT
  Sex: Female

DRUGS (1)
  1. NEOMYCIN AND POLYMYXIN B SULFATES AND DEXAMETHASONE [Suspect]
     Active Substance: DEXAMETHASONE\NEOMYCIN SULFATE\POLYMYXIN B SULFATE
     Indication: PRODUCT USED FOR UNKNOWN INDICATION
     Dosage: 0.1 %, FOUR TIMES A DAY
     Route: 065
     Dates: start: 20190301

REACTIONS (4)
  - Swelling of eyelid [Not Recovered/Not Resolved]
  - Frustration tolerance decreased [Unknown]
  - Vision blurred [Not Recovered/Not Resolved]
  - Eye irritation [Not Recovered/Not Resolved]
